FAERS Safety Report 14844358 (Version 1)
Quarter: 2018Q2

REPORT INFORMATION
  Report Type: Report from Study
  Country: JP (occurrence: JP)
  Receive Date: 20180503
  Receipt Date: 20180503
  Transmission Date: 20180711
  Serious: Yes (Hospitalization, Disabling, Other)
  Sender: FDA-Public Use
  Company Number: JP-GILEAD-2006-0009168

PATIENT
  Age: 60 Year
  Sex: Male

DRUGS (4)
  1. EPIVIR [Concomitant]
     Active Substance: LAMIVUDINE
     Route: 048
     Dates: start: 199811, end: 19990524
  2. EPIVIR [Concomitant]
     Active Substance: LAMIVUDINE
     Indication: HIV INFECTION
     Route: 048
     Dates: start: 20040618
  3. STOCRIN [Concomitant]
     Active Substance: EFAVIRENZ
     Indication: HIV INFECTION
     Route: 048
     Dates: start: 20030227
  4. TENOFOVIR DISOPROXIL FUMARATE. [Suspect]
     Active Substance: TENOFOVIR DISOPROXIL FUMARATE
     Indication: HIV INFECTION
     Dosage: 300 MG, QD
     Route: 048
     Dates: start: 20040618

REACTIONS (1)
  - Osteoporotic fracture [Recovering/Resolving]

NARRATIVE: CASE EVENT DATE: 20050118
